FAERS Safety Report 10060232 (Version 2)
Quarter: 2014Q2

REPORT INFORMATION
  Report Type: Spontaneous
  Country: FR (occurrence: FR)
  Receive Date: 20140404
  Receipt Date: 20140505
  Transmission Date: 20141212
  Serious: Yes (Hospitalization)
  Sender: FDA-Public Use
  Company Number: FR-BRISTOL-MYERS SQUIBB COMPANY-20576039

PATIENT
  Age: 85 Year
  Sex: Female
  Weight: 65 kg

DRUGS (10)
  1. COUMADINE [Suspect]
     Indication: ATRIAL FIBRILLATION
     Dosage: 1 DF=0.25 AND 0.50 UNITS NOS?1MG/DAY?TREATMENT WAS STOPPED ON 07MAR14
     Route: 048
     Dates: start: 20140220
  2. KARDEGIC [Suspect]
     Dosage: POWDER FOR ORAL SOLN SACHET
     Route: 048
  3. CORDARONE [Concomitant]
  4. PIASCLEDINE [Concomitant]
     Dosage: 1 DF=300 UNITS NOS
  5. DUPHALAC [Concomitant]
  6. TILDIEM [Concomitant]
  7. IDEOS [Concomitant]
     Dosage: 1 DF=500/400 IU
  8. LASILIX [Concomitant]
  9. ATARAX [Concomitant]
  10. ALDACTONE [Concomitant]

REACTIONS (3)
  - Haematoma [Recovered/Resolved]
  - Head injury [Recovering/Resolving]
  - Anaemia [Unknown]
